FAERS Safety Report 25022060 (Version 2)
Quarter: 2025Q1

REPORT INFORMATION
  Report Type: Spontaneous
  Country: US (occurrence: US)
  Receive Date: 20250228
  Receipt Date: 20250328
  Transmission Date: 20250409
  Serious: No
  Sender: JOHNSON AND JOHNSON
  Company Number: US-JNJFOC-20250236678

PATIENT
  Sex: Male

DRUGS (1)
  1. TREMFYA [Suspect]
     Active Substance: GUSELKUMAB
     Indication: Product used for unknown indication
     Route: 065
     Dates: start: 202411

REACTIONS (9)
  - Product dose omission issue [Unknown]
  - Device issue [Unknown]
  - Product dose omission issue [Unknown]
  - Skin haemorrhage [Unknown]
  - Peripheral swelling [Unknown]
  - Drug ineffective [Unknown]
  - Skin laceration [Unknown]
  - Device malfunction [Unknown]
  - Nail injury [Unknown]
